FAERS Safety Report 15221717 (Version 5)
Quarter: 2019Q1

REPORT INFORMATION
  Report Type: Spontaneous
  Country: CN (occurrence: CN)
  Receive Date: 20180731
  Receipt Date: 20190103
  Transmission Date: 20190417
  Serious: Yes (Other)
  Sender: FDA-Public Use
  Company Number: CN-ASTRAZENECA-2018SE93792

PATIENT
  Age: 68 Year
  Sex: Female

DRUGS (10)
  1. HEPARIN [Concomitant]
     Active Substance: HEPARIN SODIUM
     Indication: ANTICOAGULANT THERAPY
  2. TRADITIONAL CHINESE MEDICINE NOS [Concomitant]
     Indication: ADHESIVE TAPE USE
  3. TRADITIONAL CHINESE MEDICINE NOS [Concomitant]
     Indication: ACUPUNCTURE
  4. PEMETREXED. [Concomitant]
     Active Substance: PEMETREXED
  5. IRESSA [Suspect]
     Active Substance: GEFITINIB
     Indication: LUNG NEOPLASM MALIGNANT
     Route: 048
     Dates: start: 201806
  6. IRESSA [Suspect]
     Active Substance: GEFITINIB
     Indication: LUNG NEOPLASM MALIGNANT
     Route: 048
  7. LOXONIN [Suspect]
     Active Substance: LOXOPROFEN SODIUM
     Route: 065
  8. HYPOTENSOR [Concomitant]
  9. TRADITIONAL CHINESE MEDICINE NOS [Concomitant]
     Indication: CARDIAC DISORDER
  10. COZAAR [Concomitant]
     Active Substance: LOSARTAN POTASSIUM
     Indication: THROMBOLYSIS

REACTIONS (11)
  - Tongue ulceration [Recovered/Resolved]
  - Diarrhoea [Recovering/Resolving]
  - Lip disorder [Not Recovered/Not Resolved]
  - Malignant neoplasm progression [Not Recovered/Not Resolved]
  - Tumour marker increased [Not Recovered/Not Resolved]
  - Drug resistance [Not Recovered/Not Resolved]
  - Pyrexia [Recovering/Resolving]
  - Sciatica [Recovering/Resolving]
  - Gingival ulceration [Recovered/Resolved]
  - Drug ineffective [Unknown]
  - Stomatitis [Not Recovered/Not Resolved]
